FAERS Safety Report 8593663-0 (Version None)
Quarter: 2012Q3

REPORT INFORMATION
  Report Type: 
  Country: None (occurrence: None)
  Receive Date: 20120814
  Receipt Date: 20120717
  Transmission Date: 20120928
  Serious: No
  Sender: FDA-Public Use
  Company Number: US-ASTRAZENECA-2012SE50312

PATIENT
  Age: 71 Year
  Sex: Female

DRUGS (3)
  1. METFORMIN HCL [Concomitant]
  2. LIPITOR [Suspect]
     Route: 065
  3. CRESTOR [Suspect]
     Route: 048

REACTIONS (6)
  - DIABETES MELLITUS [None]
  - DIABETES MELLITUS INADEQUATE CONTROL [None]
  - CARDIAC DISORDER [None]
  - WEIGHT DECREASED [None]
  - MUSCLE SPASMS [None]
  - RENAL DISORDER [None]
